FAERS Safety Report 23759060 (Version 1)
Quarter: 2024Q2

REPORT INFORMATION
  Report Type: Spontaneous
  Country: US (occurrence: None)
  Receive Date: 20240418
  Receipt Date: 20240418
  Transmission Date: 20240716
  Serious: No
  Sender: FDA-Public Use
  Company Number: US-ROCHE-3395321

PATIENT
  Sex: Female

DRUGS (4)
  1. KADCYLA [Suspect]
     Active Substance: ADO-TRASTUZUMAB EMTANSINE
     Indication: HER2 positive breast cancer
     Route: 065
  2. PERJETA [Suspect]
     Active Substance: PERTUZUMAB
     Indication: Product used for unknown indication
     Route: 065
  3. HERCEPTIN [Suspect]
     Active Substance: TRASTUZUMAB
     Indication: Product used for unknown indication
     Route: 065
  4. TAXOL [Suspect]
     Active Substance: PACLITAXEL
     Indication: Product used for unknown indication
     Route: 065

REACTIONS (3)
  - Neuropathy peripheral [Unknown]
  - Bursitis [Unknown]
  - Weight fluctuation [Unknown]
